FAERS Safety Report 9910857 (Version 3)
Quarter: 2014Q2

REPORT INFORMATION
  Report Type: Report from Study
  Country: US (occurrence: US)
  Receive Date: 20140219
  Receipt Date: 20140418
  Transmission Date: 20141212
  Serious: Yes (Hospitalization)
  Sender: FDA-Public Use
  Company Number: US-ASTRAZENECA-2013SE88612

PATIENT
  Sex: Male
  Weight: 79.4 kg

DRUGS (24)
  1. VANCOMYCIN [Suspect]
     Indication: ANTIBIOTIC THERAPY
     Route: 042
     Dates: start: 20131202, end: 20131202
  2. ACETAMINOPHEN [Suspect]
     Indication: SURGERY
     Route: 048
     Dates: start: 20131202, end: 20131202
  3. ROPIVACAINE NERVE BLOCK [Suspect]
     Indication: ANAESTHESIA
     Route: 042
     Dates: start: 20131202, end: 20131202
  4. INDOCIN [Suspect]
     Indication: GOUT
     Route: 048
     Dates: start: 20131209, end: 20131209
  5. K-DUR [Suspect]
     Indication: SUPPLEMENTATION THERAPY
     Route: 048
     Dates: start: 20131209, end: 20131209
  6. ASPIRIN [Suspect]
     Indication: ANTIPLATELET THERAPY
     Route: 048
     Dates: start: 20131213, end: 20131216
  7. CEFAZOLIN [Suspect]
     Indication: ANTIBIOTIC THERAPY
     Route: 042
     Dates: start: 20131202, end: 20131203
  8. CELEBREX [Suspect]
     Indication: SURGERY
     Route: 048
     Dates: start: 20131202, end: 20131202
  9. COLACE [Suspect]
     Indication: LAXATIVE SUPPORTIVE CARE
     Route: 048
     Dates: start: 20131202
  10. OXYCODONE [Suspect]
     Indication: PAIN
     Route: 048
     Dates: start: 20131202, end: 20131216
  11. ENOXAPARIN [Suspect]
     Indication: ANTICOAGULANT THERAPY
     Route: 058
     Dates: start: 20131203, end: 20131212
  12. RESTORIL [Suspect]
     Indication: INSOMNIA
     Route: 048
     Dates: start: 20131205, end: 20131216
  13. TUBERCULIN PPD INJECTION [Suspect]
     Indication: DIAGNOSTIC PROCEDURE
     Route: 023
     Dates: start: 20131205, end: 20131205
  14. PREVACID DR [Suspect]
     Indication: PROPHYLAXIS
     Route: 048
     Dates: start: 20131206, end: 20131217
  15. SENNA CONCENTRATE [Suspect]
     Indication: CONSTIPATION
     Route: 048
     Dates: start: 20131206, end: 20131217
  16. AZD6140 CODE NOT BROKEN [Suspect]
     Indication: PERIPHERAL ARTERIAL OCCLUSIVE DISEASE
     Route: 048
     Dates: start: 20130925, end: 20131127
  17. COLCHICINE [Concomitant]
     Indication: GOUT
     Route: 048
     Dates: start: 20060512
  18. LISINOPRIL [Concomitant]
     Indication: HYPERTENSION
     Route: 048
     Dates: start: 20070416
  19. TOPROL XL [Concomitant]
     Indication: HYPERTENSION
     Route: 048
     Dates: start: 20100428
  20. ZETIA [Concomitant]
     Indication: DYSLIPIDAEMIA
     Route: 048
     Dates: start: 20101123
  21. CRESTOR [Concomitant]
     Indication: DYSLIPIDAEMIA
     Route: 048
     Dates: start: 20110519
  22. FERROUS SULFATE [Concomitant]
     Indication: SUPPLEMENTATION THERAPY
     Route: 048
     Dates: start: 20131008
  23. GABAPENTIN [Concomitant]
     Indication: PAIN
     Route: 048
     Dates: start: 20131008
  24. NORVASC [Concomitant]
     Indication: HYPERTENSION
     Route: 048
     Dates: start: 20131008

REACTIONS (1)
  - Osteoarthritis [Recovered/Resolved]
